FAERS Safety Report 12595001 (Version 1)
Quarter: 2016Q3

REPORT INFORMATION
  Report Type: Spontaneous
  Country: US (occurrence: US)
  Receive Date: 20160726
  Receipt Date: 20160726
  Transmission Date: 20161109
  Serious: No
  Sender: FDA-Public Use
  Company Number: US-UNITED THERAPEUTICS-UNT-2015-013949

PATIENT
  Age: 70 Year
  Sex: Female
  Weight: 58.96 kg

DRUGS (2)
  1. REMODULIN [Suspect]
     Active Substance: TREPROSTINIL
     Indication: PULMONARY ARTERIAL HYPERTENSION
     Dosage: 0.020 ?G/KG/MIN, CONTINUING
     Route: 058
     Dates: start: 20150305
  2. REMODULIN [Suspect]
     Active Substance: TREPROSTINIL
     Dosage: UNK

REACTIONS (6)
  - Infusion site oedema [Unknown]
  - Infusion site pain [Not Recovered/Not Resolved]
  - Drug dose omission [Unknown]
  - Device dislocation [Unknown]
  - Infusion site erythema [Unknown]
  - Infusion site irritation [Unknown]

NARRATIVE: CASE EVENT DATE: 201510
